FAERS Safety Report 6864358-6 (Version None)
Quarter: 2010Q3

REPORT INFORMATION
  Report Type: 
  Country: None (occurrence: None)
  Receive Date: 20100721
  Receipt Date: 20080319
  Transmission Date: 20110219
  Serious: No
  Sender: FDA-Public Use
  Company Number: US-PFIZER INC-2008026060

PATIENT
  Sex: Male
  Weight: 81.8 kg

DRUGS (3)
  1. CHANTIX [Suspect]
     Dates: start: 20071001
  2. SYNTHROID [Concomitant]
     Indication: THYROID DISORDER
  3. VYTORIN [Concomitant]
     Indication: BLOOD CHOLESTEROL INCREASED

REACTIONS (4)
  - ABNORMAL DREAMS [None]
  - DYSARTHRIA [None]
  - MICTURITION URGENCY [None]
  - RENAL DISORDER [None]
